FAERS Safety Report 16877014 (Version 1)
Quarter: 2019Q4

REPORT INFORMATION
  Report Type: Report from Study
  Country: None (occurrence: NL)
  Receive Date: 20191002
  Receipt Date: 20191002
  Transmission Date: 20200122
  Serious: Yes (Other)
  Sender: FDA-Public Use
  Company Number: NL-ABBVIE-19K-114-2943621-00

PATIENT
  Sex: Female

DRUGS (1)
  1. HUMIRA [Suspect]
     Active Substance: ADALIMUMAB
     Indication: PSORIASIS
     Route: 058
     Dates: start: 20180601

REACTIONS (6)
  - Fatigue [Recovered/Resolved]
  - Blood test abnormal [Recovered/Resolved]
  - Pain [Recovered/Resolved]
  - Transfusion [Unknown]
  - Mineral supplementation [Unknown]
  - Muscular weakness [Recovered/Resolved]
